FAERS Safety Report 9050393 (Version 1)
Quarter: 2013Q1

REPORT INFORMATION
  Report Type: Spontaneous
  Country: US (occurrence: US)
  Receive Date: 20130205
  Receipt Date: 20130205
  Transmission Date: 20140127
  Serious: No
  Sender: FDA-Public Use
  Company Number: US-PFIZER INC-2013040608

PATIENT
  Age: 70 Year
  Sex: Female

DRUGS (1)
  1. RAPAMUNE [Suspect]
     Indication: LIVER TRANSPLANT
     Dosage: 2 MG, 2X/DAY
     Dates: start: 20111202

REACTIONS (2)
  - Off label use [Unknown]
  - Fall [Unknown]
